FAERS Safety Report 16883423 (Version 3)
Quarter: 2019Q4

REPORT INFORMATION
  Report Type: Report from Study
  Country: None (occurrence: CZ)
  Receive Date: 20191004
  Receipt Date: 20191115
  Transmission Date: 20200122
  Serious: Yes (Life-Threatening, Hospitalization)
  Sender: FDA-Public Use
  Company Number: CZ-ABBVIE-19K-217-2949560-00

PATIENT
  Age: 62 Year
  Sex: Male
  Weight: 76 kg

DRUGS (10)
  1. METOTREXATE [Concomitant]
     Active Substance: METHOTREXATE SODIUM
     Indication: PSORIASIS
     Route: 048
     Dates: start: 201608, end: 20190104
  2. SIOFOR [Concomitant]
     Active Substance: METFORMIN HYDROCHLORIDE
     Indication: DIABETES MELLITUS
     Route: 048
  3. STACYL [Concomitant]
     Indication: PRODUCT USED FOR UNKNOWN INDICATION
     Route: 048
  4. HUMIRA [Suspect]
     Active Substance: ADALIMUMAB
     Indication: PSORIASIS
     Route: 058
     Dates: start: 20150602, end: 20190704
  5. HUMALOG [Concomitant]
     Active Substance: INSULIN LISPRO
     Indication: DIABETES MELLITUS
     Route: 058
  6. VEROGALID [Concomitant]
     Indication: MYOCARDIAL ISCHAEMIA
     Route: 048
  7. EZETROL [Concomitant]
     Active Substance: EZETIMIBE
     Indication: LIPIDS ABNORMAL
     Route: 048
  8. BASAGLAR [Concomitant]
     Active Substance: INSULIN GLARGINE
     Indication: DIABETES MELLITUS
     Route: 058
  9. MONOSAN [Concomitant]
     Indication: DIABETES MELLITUS
     Route: 048
  10. SORVASTA [Concomitant]
     Active Substance: ROSUVASTATIN CALCIUM
     Indication: LIPIDS ABNORMAL
     Route: 048

REACTIONS (5)
  - Abdominal distension [Unknown]
  - Hypotonia [Unknown]
  - Diffuse large B-cell lymphoma [Unknown]
  - Pleural effusion [Unknown]
  - Pericardial effusion [Unknown]

NARRATIVE: CASE EVENT DATE: 20190829
